FAERS Safety Report 5214357-5 (Version None)
Quarter: 2007Q1

REPORT INFORMATION
  Report Type: 
  Country: None (occurrence: None)
  Receive Date: 20070122
  Receipt Date: 20070118
  Transmission Date: 20070707
  Serious: Yes (Hospitalization)
  Sender: FDA-Public Use
  Company Number: CA-GLAXOSMITHKLINE-A0632518A

PATIENT
  Age: 63 Year
  Sex: Female
  Weight: 94.5 kg

DRUGS (1)
  1. COREG [Suspect]
     Indication: HYPERTENSION
     Dosage: 20MG PER DAY
     Route: 048
     Dates: start: 20060505, end: 20061216

REACTIONS (4)
  - CHEST PAIN [None]
  - DYSPNOEA [None]
  - HYPERHIDROSIS [None]
  - MYOCARDIAL INFARCTION [None]
